FAERS Safety Report 7152350-6 (Version None)
Quarter: 2010Q4

REPORT INFORMATION
  Report Type: 
  Country: None (occurrence: None)
  Receive Date: 20101123
  Receipt Date: 20100907
  Transmission Date: 20110411
  Serious: Yes (Other)
  Sender: FDA-Public Use
  Company Number: DSJ-2010-15717

PATIENT
  Age: 58 Year
  Sex: Male

DRUGS (3)
  1. OLMESARTAN MEDOXOMIL [Suspect]
     Indication: HYPERTENSION
     Dosage: 20 MG, PER ORAL
     Route: 048
     Dates: start: 20100902, end: 20100903
  2. LANDEL (EFONIDIPINE HYDROCHLORIDE) (TABLET) (EFONIDIPINE HYDROCHLORIDE [Suspect]
     Indication: HYPERTENSION
     Dosage: 20 MG (MORNING AND EVENING) (10 MG, 2 IN 1 D),
     Dates: start: 20100902, end: 20100906
  3. BEZATOL (BEZAFIBRATE) (BEZAFIBRATE) [Concomitant]

REACTIONS (10)
  - BLOOD CHOLESTEROL INCREASED [None]
  - BLOOD GLUCOSE INCREASED [None]
  - BLOOD PRESSURE DECREASED [None]
  - BLOOD TRIGLYCERIDES INCREASED [None]
  - BLOOD URIC ACID INCREASED [None]
  - CELLULITIS [None]
  - DRUG ERUPTION [None]
  - HYPERHIDROSIS [None]
  - LOW DENSITY LIPOPROTEIN INCREASED [None]
  - WHITE BLOOD CELL COUNT INCREASED [None]
